FAERS Safety Report 7956651-0 (Version None)
Quarter: 2011Q4

REPORT INFORMATION
  Report Type: 
  Country: None (occurrence: None)
  Receive Date: 20111205
  Receipt Date: 20111128
  Transmission Date: 20120403
  Serious: Yes (Hospitalization, Other)
  Sender: FDA-Public Use
  Company Number: US-JNJFOC-20110806526

PATIENT
  Sex: Female

DRUGS (1)
  1. LEVAQUIN [Suspect]
     Indication: BACTERIAL INFECTION
     Route: 048
     Dates: start: 20090201

REACTIONS (5)
  - TENDON RUPTURE [None]
  - ARTHRALGIA [None]
  - BACK PAIN [None]
  - ARTHROPATHY [None]
  - TENDON DISORDER [None]
